FAERS Safety Report 18826030 (Version 2)
Quarter: 2021Q1

REPORT INFORMATION
  Report Type: Spontaneous
  Country: PL (occurrence: PL)
  Receive Date: 20210202
  Receipt Date: 20210209
  Transmission Date: 20210419
  Serious: Yes (Other)
  Sender: FDA-Public Use
  Company Number: PL-ELI_LILLY_AND_COMPANY-PL202102000250

PATIENT
  Age: 34 Year
  Sex: Female

DRUGS (3)
  1. OLANZAPINE. [Suspect]
     Active Substance: OLANZAPINE
     Dosage: 15 MG, DAILY
     Route: 065
  2. OLANZAPINE. [Suspect]
     Active Substance: OLANZAPINE
     Indication: PRODUCT USED FOR UNKNOWN INDICATION
     Dosage: 20 MG, DAILY
     Route: 065
  3. HALOPERIDOL. [Suspect]
     Active Substance: HALOPERIDOL
     Indication: PRODUCT USED FOR UNKNOWN INDICATION

REACTIONS (9)
  - Metabolic syndrome [Unknown]
  - Somnolence [Recovering/Resolving]
  - Hallucination, auditory [Recovering/Resolving]
  - Extrapyramidal disorder [Recovered/Resolved]
  - Delusional disorder, unspecified type [Recovering/Resolving]
  - Therapeutic product effect incomplete [Unknown]
  - Anxiety [Unknown]
  - Hyperphagia [Recovering/Resolving]
  - Persecutory delusion [Recovering/Resolving]
